FAERS Safety Report 8224921-7 (Version None)
Quarter: 2012Q1

REPORT INFORMATION
  Report Type: 
  Country: None (occurrence: None)
  Receive Date: 20120321
  Receipt Date: 20120312
  Transmission Date: 20120608
  Serious: Yes (Other)
  Sender: FDA-Public Use
  Company Number: PT-TEVA-317883ISR

PATIENT
  Age: 63 Year
  Sex: Female

DRUGS (7)
  1. FUROSEMIDE [Concomitant]
     Indication: HYPERTENSION
     Dosage: 40 MILLIGRAM;
     Route: 048
  2. LITHIUM CARBONATE [Concomitant]
     Indication: BIPOLAR DISORDER
     Dosage: 400 MILLIGRAM;
     Route: 048
  3. TRAMADOL HCL [Concomitant]
     Indication: PAIN
     Dosage: 200 MILLIGRAM;
     Route: 048
  4. ACETAMINOPHEN [Concomitant]
     Indication: PAIN PROPHYLAXIS
     Dosage: 1000 MILLIGRAM;
     Route: 048
  5. LEVOTHYROXINE SODIUM [Concomitant]
     Indication: HYPOTHYROIDISM
     Dosage: .1 MILLIGRAM;
     Route: 048
  6. SULFAMETHOXAZOLE AND TRIMETHOPRIM [Suspect]
     Indication: URINARY TRACT INFECTION
     Dosage: 4 TABLET; EACH TABLET - 800 MG + 160 MG
     Route: 048
     Dates: start: 20111018
  7. VALPROIC ACID [Concomitant]
     Indication: MAJOR DEPRESSION
     Dosage: 500 MILLIGRAM;
     Route: 048

REACTIONS (2)
  - PALMAR ERYTHEMA [None]
  - BLISTER [None]
